FAERS Safety Report 15437089 (Version 9)
Quarter: 2019Q1

REPORT INFORMATION
  Report Type: Report from Study
  Country: US (occurrence: US)
  Receive Date: 20180927
  Receipt Date: 20190328
  Transmission Date: 20190417
  Serious: Yes (Hospitalization, Other)
  Sender: FDA-Public Use
  Company Number: US-CLOVIS ONCOLOGY-CLO-2018-001244

PATIENT
  Age: 62 Year
  Sex: Female

DRUGS (3)
  1. RUBRACA [Suspect]
     Active Substance: RUCAPARIB CAMSYLATE
     Dosage: UNK
     Dates: start: 20180813
  2. RUBRACA [Suspect]
     Active Substance: RUCAPARIB CAMSYLATE
     Dosage: 500 MG, BID
     Route: 048
     Dates: start: 20180906
  3. RUBRACA [Suspect]
     Active Substance: RUCAPARIB CAMSYLATE
     Indication: FALLOPIAN TUBE CANCER
     Dosage: 600 MG, BID
     Route: 048
     Dates: start: 20180813, end: 20180904

REACTIONS (17)
  - Carbohydrate antigen 125 increased [Not Recovered/Not Resolved]
  - Platelet count decreased [Recovered/Resolved]
  - Weight decreased [Not Recovered/Not Resolved]
  - Red blood cell count decreased [Recovering/Resolving]
  - Nausea [Recovered/Resolved]
  - White blood cell count decreased [Recovering/Resolving]
  - Platelet count decreased [Recovered/Resolved]
  - Metastases to lymph nodes [Unknown]
  - Arthralgia [Recovering/Resolving]
  - Hot flush [Not Recovered/Not Resolved]
  - Insomnia [Recovering/Resolving]
  - Sunburn [Unknown]
  - Photosensitivity reaction [Not Recovered/Not Resolved]
  - Fatigue [Recovered/Resolved]
  - Product dose omission [Unknown]
  - Vertigo [Recovered/Resolved]
  - Dizziness [Recovered/Resolved]

NARRATIVE: CASE EVENT DATE: 2018
